FAERS Safety Report 25842650 (Version 1)
Quarter: 2025Q3

REPORT INFORMATION
  Report Type: Report from Study
  Country: EU (occurrence: EU)
  Receive Date: 20250924
  Receipt Date: 20250924
  Transmission Date: 20251020
  Serious: Yes (Life-Threatening)
  Sender: ABBVIE
  Company Number: EU-ABBVIE-6473243

PATIENT

DRUGS (1)
  1. CISATRACURIUM [Suspect]
     Active Substance: CISATRACURIUM
     Indication: Neuromuscular blocking therapy
     Route: 042

REACTIONS (1)
  - Hypersensitivity [Unknown]
